FAERS Safety Report 9130427 (Version 1)
Quarter: 2013Q1

REPORT INFORMATION
  Report Type: Spontaneous
  Country: CM (occurrence: CM)
  Receive Date: 20130301
  Receipt Date: 20130301
  Transmission Date: 20140127
  Serious: Yes (Other)
  Sender: FDA-Public Use
  Company Number: CM-B.I. PHARMACEUTICALS,INC./RIDGEFIELD-2013-BI-04594GD

PATIENT
  Age: 45 Year
  Sex: Female

DRUGS (3)
  1. VIRAMUNE [Suspect]
     Indication: HIV INFECTION
  2. DIDANOSINE [Suspect]
     Indication: HIV INFECTION
  3. LOPINAVIR/RITONAVIR [Suspect]
     Indication: HIV INFECTION

REACTIONS (4)
  - Kaposi^s sarcoma [Recovered/Resolved]
  - Virologic failure [Unknown]
  - Drug resistance [Unknown]
  - Viral mutation identified [Unknown]
